FAERS Safety Report 6902751-3 (Version None)
Quarter: 2010Q3

REPORT INFORMATION
  Report Type: 
  Country: None (occurrence: None)
  Receive Date: 20100803
  Receipt Date: 20080902
  Transmission Date: 20110219
  Serious: No
  Sender: FDA-Public Use
  Company Number: US-PFIZER INC-2008074083

PATIENT
  Sex: Female
  Weight: 59.1 kg

DRUGS (10)
  1. LYRICA [Suspect]
     Indication: PAIN IN EXTREMITY
     Route: 048
  2. POTASSIUM [Concomitant]
  3. CARDIZEM [Concomitant]
  4. MAGNESIUM [Concomitant]
  5. CALCIUM [Concomitant]
  6. MULTIVITAMIN [Concomitant]
  7. PROZAC [Concomitant]
  8. REGLAN [Concomitant]
  9. PROMETHAZINE [Concomitant]
  10. LORTAB [Concomitant]

REACTIONS (4)
  - DRUG DOSE OMISSION [None]
  - NAUSEA [None]
  - SOMNOLENCE [None]
  - VOMITING [None]
